FAERS Safety Report 9133898 (Version 1)
Quarter: 2013Q1

REPORT INFORMATION
  Report Type: Spontaneous
  Country: None (occurrence: US)
  Receive Date: 20130119
  Receipt Date: 20130119
  Transmission Date: 20140127
  Serious: No
  Sender: FDA-Public Use
  Company Number: US-ALLERGAN-1200922US

PATIENT
  Age: 74 Year
  Sex: Male
  Weight: 95 kg

DRUGS (3)
  1. BOTOX? [Suspect]
     Indication: TORTICOLLIS
     Dosage: 200 UNITS, SINGLE
     Route: 030
     Dates: start: 20111219, end: 20111219
  2. SINEMET 25/100 [Concomitant]
     Dosage: UNK %, UNK
     Route: 048
  3. REQUIP [Concomitant]
     Dosage: 4 MG, TID
     Route: 048

REACTIONS (5)
  - Musculoskeletal stiffness [Recovering/Resolving]
  - Neck pain [Recovering/Resolving]
  - Torticollis [Recovering/Resolving]
  - Oropharyngeal pain [Recovering/Resolving]
  - Muscular weakness [Recovering/Resolving]
